FAERS Safety Report 12994973 (Version 1)
Quarter: 2016Q4

REPORT INFORMATION
  Report Type: Spontaneous
  Country: US (occurrence: US)
  Receive Date: 20161202
  Receipt Date: 20161202
  Transmission Date: 20170207
  Serious: Yes (Other)
  Sender: FDA-Public Use
  Company Number: US-SAGENTPRD-2016-US-000073

PATIENT
  Age: 40 Year
  Sex: Male

DRUGS (4)
  1. LEUCOVORIN CALCIUM FOR INJECTION [Suspect]
     Active Substance: LEUCOVORIN CALCIUM
     Dosage: 200 MG/M^2
  2. IRINOTECAN [Concomitant]
     Active Substance: IRINOTECAN
  3. AFLIBERCEPT [Concomitant]
     Active Substance: AFLIBERCEPT
  4. FLUOROURACIL. [Concomitant]
     Active Substance: FLUOROURACIL

REACTIONS (4)
  - Hypertension [Unknown]
  - Proteinuria [Unknown]
  - Diarrhoea [Unknown]
  - Alopecia [Unknown]
